FAERS Safety Report 13838293 (Version 1)
Quarter: 2017Q3

REPORT INFORMATION
  Report Type: Spontaneous
  Country: US (occurrence: US)
  Receive Date: 20170807
  Receipt Date: 20170807
  Transmission Date: 20171127
  Serious: No
  Sender: FDA-Public Use
  Company Number: US-009507513-1708USA000001

PATIENT
  Age: 72 Year
  Sex: Female

DRUGS (2)
  1. PRINIVIL [Suspect]
     Active Substance: LISINOPRIL
     Indication: BLOOD PRESSURE INCREASED
     Dosage: UNK
     Dates: start: 20170712
  2. XELJANZ [Suspect]
     Active Substance: TOFACITINIB CITRATE
     Indication: RHEUMATOID ARTHRITIS
     Dosage: 5 MG, ONCE DAILY
     Route: 048
     Dates: start: 20170707

REACTIONS (2)
  - Blood pressure increased [Unknown]
  - Erythema [Unknown]

NARRATIVE: CASE EVENT DATE: 20170712
